FAERS Safety Report 10335936 (Version 5)
Quarter: 2015Q3

REPORT INFORMATION
  Report Type: Report from Study
  Country: US (occurrence: US)
  Receive Date: 20140723
  Receipt Date: 20150709
  Transmission Date: 20151125
  Serious: Yes (Hospitalization, Other)
  Sender: FDA-Public Use
  Company Number: US-SA-2014SA075899

PATIENT
  Age: 42 Year
  Sex: Female

DRUGS (2)
  1. AUBAGIO [Suspect]
     Active Substance: TERIFLUNOMIDE
     Indication: MULTIPLE SCLEROSIS
     Route: 048
     Dates: start: 20140522
  2. AUBAGIO [Suspect]
     Active Substance: TERIFLUNOMIDE
     Indication: MULTIPLE SCLEROSIS
     Route: 048
     Dates: start: 20140702, end: 20141101

REACTIONS (11)
  - Vision blurred [Not Recovered/Not Resolved]
  - Balance disorder [Unknown]
  - Sunburn [Unknown]
  - Unevaluable event [Unknown]
  - Muscular weakness [Unknown]
  - Walking aid user [Unknown]
  - Headache [Not Recovered/Not Resolved]
  - Vomiting [Unknown]
  - Gait disturbance [Unknown]
  - Dysstasia [Unknown]
  - Vertigo [Unknown]
